FAERS Safety Report 10866149 (Version 1)
Quarter: 2015Q1

REPORT INFORMATION
  Report Type: Spontaneous
  Country: US (occurrence: None)
  Receive Date: 20150219
  Receipt Date: 20150219
  Transmission Date: 20150721
  Serious: Yes (Other)
  Sender: FDA-Public Use
  Company Number: 001867590A

PATIENT
  Age: 41 Year
  Sex: Female

DRUGS (2)
  1. PROACTIV PLUS MARK FADING [Suspect]
     Active Substance: GLYCOLIC ACID\SALICYLIC ACID
     Indication: ACNE
     Dosage: TWICE DAILY DERMAL
     Dates: start: 20150112, end: 20150114
  2. PROACTIVPLUS SKIN SMOOTHING EXFOLIATOR [Suspect]
     Active Substance: BENZOYL PEROXIDE
     Indication: ACNE
     Dosage: TWICE DAILY DERMAL
     Dates: start: 20150112, end: 20150114

REACTIONS (3)
  - Face oedema [None]
  - Facial pain [None]
  - Staphylococcal infection [None]

NARRATIVE: CASE EVENT DATE: 20150114
